FAERS Safety Report 8145127-6 (Version None)
Quarter: 2012Q1

REPORT INFORMATION
  Report Type: 
  Country: None (occurrence: None)
  Receive Date: 20120217
  Receipt Date: 20120214
  Transmission Date: 20120608
  Serious: Yes (Hospitalization)
  Sender: FDA-Public Use
  Company Number: PHHO2012FR002666

PATIENT
  Sex: Female
  Weight: 54 kg

DRUGS (2)
  1. PEGASYS [Suspect]
     Indication: CHRONIC MYELOID LEUKAEMIA
     Dosage: 45 UG, 1X2 SEMAIN^
     Dates: start: 20111222, end: 20120101
  2. TASIGNA [Suspect]
     Indication: CHRONIC MYELOID LEUKAEMIA
     Dosage: 300 MG 1XJOUR
     Dates: start: 20110728, end: 20120130

REACTIONS (2)
  - PYREXIA [None]
  - GENERAL PHYSICAL HEALTH DETERIORATION [None]
